FAERS Safety Report 20409780 (Version 1)
Quarter: 2022Q1

REPORT INFORMATION
  Report Type: Spontaneous
  Country: US (occurrence: US)
  Receive Date: 20220201
  Receipt Date: 20220201
  Transmission Date: 20220424
  Serious: No
  Sender: FDA-Public Use
  Company Number: US-SAREPTA THERAPEUTICS INC.-SRP2021-001814

PATIENT
  Age: 33 Year
  Sex: Male
  Weight: 28.9 kg

DRUGS (3)
  1. AMONDYS 45 [Suspect]
     Active Substance: CASIMERSEN
     Indication: Duchenne muscular dystrophy
     Dosage: 900 MILLIGRAM, WEEKLY
     Route: 042
     Dates: start: 20211022, end: 20211112
  2. AMONDYS 45 [Suspect]
     Active Substance: CASIMERSEN
     Dosage: 900 MILLIGRAM, WEEKLY
     Route: 042
     Dates: start: 20211119
  3. DEFLAZACORT [Concomitant]
     Active Substance: DEFLAZACORT
     Indication: Duchenne muscular dystrophy
     Dosage: 36 MILLIGRAM
     Route: 048
     Dates: start: 20180523

REACTIONS (4)
  - Wrong product administered [Unknown]
  - Product dispensing error [Unknown]
  - No adverse event [Unknown]
  - Product dose omission issue [Unknown]

NARRATIVE: CASE EVENT DATE: 20211111
